FAERS Safety Report 6728539-4 (Version None)
Quarter: 2010Q2

REPORT INFORMATION
  Report Type: 
  Country: None (occurrence: None)
  Receive Date: 20100517
  Receipt Date: 20100506
  Transmission Date: 20101027
  Serious: Yes (Other)
  Sender: FDA-Public Use
  Company Number: JP-BAXTER-2010BH012961

PATIENT
  Age: 11 Year
  Sex: Female

DRUGS (6)
  1. HOLOXAN BAXTER [Suspect]
     Indication: BONE SARCOMA
     Dosage: DOSE UNIT:GRAMS PER METERS SQUARED
     Route: 065
  2. ADRIAMYCIN PFS [Suspect]
     Indication: BONE SARCOMA
     Route: 065
  3. CISPLATIN [Suspect]
     Indication: BONE SARCOMA
     Route: 065
  4. METHOTREXATE [Suspect]
     Indication: BONE SARCOMA
     Route: 065
  5. ETOPOSIDE [Suspect]
     Indication: BONE SARCOMA
     Route: 065
  6. CARBOPLATIN [Suspect]
     Indication: BONE SARCOMA
     Dosage: DOSE UNIT:GRAMS PER METERS SQUARED
     Route: 065

REACTIONS (1)
  - EWING'S SARCOMA [None]
